FAERS Safety Report 18399177 (Version 1)
Quarter: 2020Q4

REPORT INFORMATION
  Report Type: Spontaneous
  Country: US (occurrence: US)
  Receive Date: 20201019
  Receipt Date: 20201019
  Transmission Date: 20210114
  Serious: Yes (Other)
  Sender: FDA-Public Use
  Company Number: None

PATIENT
  Age: 63 Year
  Sex: Male
  Weight: 85.95 kg

DRUGS (10)
  1. ELIQUIS [Concomitant]
     Active Substance: APIXABAN
  2. TYLENOL [Concomitant]
     Active Substance: ACETAMINOPHEN
  3. VIT D [Concomitant]
     Active Substance: VITAMIN D NOS
  4. FOLIC ACID. [Concomitant]
     Active Substance: FOLIC ACID
  5. CBD [Concomitant]
     Active Substance: CANNABIDIOL
  6. FIBER PILL [Concomitant]
  7. TRAMADOL. [Concomitant]
     Active Substance: TRAMADOL
  8. ZYRTEC [Concomitant]
     Active Substance: CETIRIZINE HYDROCHLORIDE
  9. XELJANZ [Suspect]
     Active Substance: TOFACITINIB CITRATE
     Indication: PSORIATIC ARTHROPATHY
     Route: 048
     Dates: start: 20200215, end: 20200907
  10. COSENTYX [Concomitant]
     Active Substance: SECUKINUMAB

REACTIONS (2)
  - Dyspnoea [None]
  - Pulmonary embolism [None]

NARRATIVE: CASE EVENT DATE: 20200509
